FAERS Safety Report 13541545 (Version 1)
Quarter: 2017Q2

REPORT INFORMATION
  Report Type: Spontaneous
  Country: GB (occurrence: GB)
  Receive Date: 20170512
  Receipt Date: 20170512
  Transmission Date: 20170830
  Serious: Yes (Other)
  Sender: FDA-Public Use
  Company Number: GB-LANNETT COMPANY, INC.-GB-2017LAN000756

PATIENT

DRUGS (2)
  1. LEVETIRACETAM. [Suspect]
     Active Substance: LEVETIRACETAM
     Indication: GENERALISED TONIC-CLONIC SEIZURE
  2. LEVETIRACETAM. [Suspect]
     Active Substance: LEVETIRACETAM
     Indication: FOCAL DYSCOGNITIVE SEIZURES
     Dosage: UNK
     Dates: start: 2014

REACTIONS (6)
  - Delirium [Recovering/Resolving]
  - Mental impairment [Recovering/Resolving]
  - Disturbance in attention [Recovering/Resolving]
  - Seizure [Recovering/Resolving]
  - Neuropsychological test abnormal [Recovering/Resolving]
  - Memory impairment [Recovering/Resolving]

NARRATIVE: CASE EVENT DATE: 201412
